FAERS Safety Report 25153277 (Version 1)
Quarter: 2025Q2

REPORT INFORMATION
  Report Type: Spontaneous
  Country: CN (occurrence: CN)
  Receive Date: 20250403
  Receipt Date: 20250403
  Transmission Date: 20250717
  Serious: Yes (Other)
  Sender: BAXTER
  Company Number: None

PATIENT
  Age: 56 Year
  Sex: Male
  Weight: 60 kg

DRUGS (5)
  1. CYCLOPHOSPHAMIDE [Suspect]
     Active Substance: CYCLOPHOSPHAMIDE
     Indication: Nephrotic syndrome
     Route: 041
     Dates: start: 20250313, end: 20250313
  2. SODIUM CHLORIDE [Suspect]
     Active Substance: SODIUM CHLORIDE
     Indication: Medication dilution
     Route: 041
     Dates: start: 20250313, end: 20250313
  3. AMINO ACIDS [Suspect]
     Active Substance: AMINO ACIDS
     Indication: Prophylaxis
     Route: 048
  4. DIETARY SUPPLEMENT [Suspect]
     Active Substance: DIETARY SUPPLEMENT
     Indication: Prophylaxis
     Route: 048
  5. FELODIPINE [Suspect]
     Active Substance: FELODIPINE
     Indication: Blood pressure management
     Route: 048

REACTIONS (4)
  - Mental impairment [Unknown]
  - Depressed mood [Unknown]
  - Speech disorder [Unknown]
  - Social avoidant behaviour [Unknown]

NARRATIVE: CASE EVENT DATE: 20250314
